FAERS Safety Report 7935673-X (Version None)
Quarter: 2011Q4

REPORT INFORMATION
  Report Type: 
  Country: None (occurrence: None)
  Receive Date: 20111121
  Receipt Date: 20111104
  Transmission Date: 20120403
  Serious: Yes (Disabling, Other)
  Sender: FDA-Public Use
  Company Number: 2011MA016048

PATIENT
  Sex: Female

DRUGS (1)
  1. METOCLOPRAMIDE [Suspect]
     Dates: start: 19890501, end: 20020301

REACTIONS (11)
  - INCORRECT DRUG ADMINISTRATION DURATION [None]
  - ACTIVITIES OF DAILY LIVING IMPAIRED [None]
  - ANHEDONIA [None]
  - EXTRAPYRAMIDAL DISORDER [None]
  - QUALITY OF LIFE DECREASED [None]
  - TARDIVE DYSKINESIA [None]
  - ECONOMIC PROBLEM [None]
  - FAMILY STRESS [None]
  - PAIN [None]
  - EMOTIONAL DISTRESS [None]
  - NERVOUS SYSTEM DISORDER [None]
